FAERS Safety Report 8173994 (Version 6)
Quarter: 2013Q1

REPORT INFORMATION
  Report Type: Report from Study
  Country: BE (occurrence: BE)
  Receive Date: 20111010
  Receipt Date: 20130207
  Transmission Date: 20140127
  Serious: Yes (Hospitalization)
  Sender: FDA-Public Use
  Company Number: BE-ROCHE-796268

PATIENT
  Age: 55 Year
  Sex: Female
  Weight: 70 kg

DRUGS (6)
  1. PEG-INTERFERON ALFA 2A [Suspect]
     Indication: HEPATITIS C
     Route: 058
     Dates: start: 20100921, end: 20110802
  2. RIBAVIRIN [Suspect]
     Indication: HEPATITIS C
     Route: 048
     Dates: start: 20100921, end: 20110810
  3. NOLVADEX [Concomitant]
     Route: 048
  4. REDOMEX [Concomitant]
     Indication: NEUROPATHY PERIPHERAL
     Route: 048
  5. LORMETAZEPAM [Concomitant]
     Indication: INSOMNIA
     Route: 048
  6. DAFALGAN [Concomitant]
     Indication: INFLUENZA LIKE ILLNESS
     Route: 048

REACTIONS (2)
  - Pyrexia [Recovered/Resolved]
  - Pulmonary arterial hypertension [Not Recovered/Not Resolved]
